FAERS Safety Report 16134601 (Version 1)
Quarter: 2019Q1

REPORT INFORMATION
  Report Type: Other
  Country: GB (occurrence: GB)
  Receive Date: 20190329
  Receipt Date: 20190329
  Transmission Date: 20190418
  Serious: Yes (Life-Threatening)
  Sender: FDA-Public Use
  Company Number: GB-BECTON DICKINSON-2019BDN00132

PATIENT
  Age: 21 Year
  Sex: Female
  Weight: 98 kg

DRUGS (3)
  1. CHLORAPREP ONE-STEP SEPP [Suspect]
     Active Substance: CHLORHEXIDINE GLUCONATE\ISOPROPYL ALCOHOL
     Indication: SPINAL ANAESTHESIA
     Dosage: 0.67ML TO HAND
     Route: 061
  2. CHLORAPREP WITH TINT [Suspect]
     Active Substance: CHLORHEXIDINE GLUCONATE\ISOPROPYL ALCOHOL
     Indication: SPINAL ANAESTHESIA
     Dosage: LARGE ORANGE TINT CHLORAPREP (CAREFUSION) TO BACK
     Route: 061
  3. IRON [Concomitant]
     Active Substance: IRON
     Dosage: ()
     Route: 048

REACTIONS (4)
  - Loss of consciousness [Recovered/Resolved]
  - Acidosis [Unknown]
  - Maternal exposure during pregnancy [Unknown]
  - Anaphylactic reaction [Recovered/Resolved]

NARRATIVE: CASE EVENT DATE: 20181009
